FAERS Safety Report 21301268 (Version 2)
Quarter: 2022Q4

REPORT INFORMATION
  Report Type: Report from Study
  Country: AR (occurrence: None)
  Receive Date: 20220907
  Receipt Date: 20221209
  Transmission Date: 20230113
  Serious: Yes (Hospitalization, Other)
  Sender: FDA-Public Use
  Company Number: AR-ROCHE-3167480

PATIENT
  Age: 53 Year
  Sex: Male
  Weight: 82 kg

DRUGS (1)
  1. RITUXIMAB [Suspect]
     Active Substance: RITUXIMAB
     Indication: Multiple sclerosis
     Route: 065
     Dates: start: 20180829, end: 20220426

REACTIONS (3)
  - Pneumonia [Recovered/Resolved]
  - Off label use [Unknown]
  - COVID-19 pneumonia [Recovered/Resolved]

NARRATIVE: CASE EVENT DATE: 20220709
